FAERS Safety Report 10666403 (Version 1)
Quarter: 2014Q4

REPORT INFORMATION
  Report Type: Spontaneous
  Country: US (occurrence: US)
  Receive Date: 20141220
  Receipt Date: 20141220
  Transmission Date: 20150529
  Serious: No
  Sender: FDA-Public Use
  Company Number: US-BAUSCH-SYM-2014-19570

PATIENT
  Age: 67 Year
  Sex: Male

DRUGS (1)
  1. XENAZINE [Suspect]
     Active Substance: TETRABENAZINE
     Indication: HUNTINGTON^S DISEASE
     Dosage: 1 TABLET, 3 TIMES DAILY THEN REDUCED TO TWICE DAILY ON UNKNOWN DATE
     Route: 048
     Dates: start: 2008, end: 20140330

REACTIONS (3)
  - Balance disorder [Unknown]
  - Medication error [Unknown]
  - Decreased activity [Unknown]

NARRATIVE: CASE EVENT DATE: 20140330
